FAERS Safety Report 11371263 (Version 2)
Quarter: 2015Q3

REPORT INFORMATION
  Report Type: Spontaneous
  Country: JP (occurrence: JP)
  Receive Date: 20150812
  Receipt Date: 20150820
  Transmission Date: 20151125
  Serious: Yes (Death, Hospitalization)
  Sender: FDA-Public Use
  Company Number: JP-TEVA-559496ISR

PATIENT
  Age: 58 Year
  Sex: Male
  Weight: 66 kg

DRUGS (17)
  1. OXYCONTIN [Concomitant]
     Active Substance: OXYCODONE HYDROCHLORIDE
     Dosage: 10 MILLIGRAM DAILY;
     Dates: start: 20150320, end: 20150322
  2. DECADRON [Concomitant]
     Active Substance: DEXAMETHASONE
     Dosage: 8 MILLIGRAM DAILY;
     Dates: start: 20150318, end: 20150320
  3. LYRICA [Concomitant]
     Active Substance: PREGABALIN
     Dosage: 150 MILLIGRAM DAILY;
     Dates: start: 20150320
  4. LOBU [Concomitant]
     Active Substance: LOBUCAVIR
     Dates: start: 20150316
  5. FENTOS [Concomitant]
     Active Substance: FENTANYL
     Dosage: 1 MILLIGRAM DAILY;
     Route: 062
     Dates: start: 20150323
  6. AVASTIN [Concomitant]
     Active Substance: BEVACIZUMAB
     Dates: start: 20150317
  7. REBAMIPIDE? [Concomitant]
     Dates: start: 20150316
  8. OXYCONTIN [Concomitant]
     Active Substance: OXYCODONE HYDROCHLORIDE
     Dosage: 10 MILLIGRAM DAILY;
     Dates: start: 20150317, end: 20150319
  9. OXYNORM [Concomitant]
     Active Substance: OXYCODONE HYDROCHLORIDE
     Dates: start: 20150317
  10. MAGMITT [Concomitant]
     Active Substance: MAGNESIUM OXIDE
     Dosage: 3 DOSAGE FORMS DAILY;
     Dates: start: 20150317
  11. ALIMTA [Concomitant]
     Active Substance: PEMETREXED DISODIUM
     Dates: start: 20150317
  12. ASTOMIN [Concomitant]
     Active Substance: DIMEMORFAN
     Dosage: 60 MILLIGRAM DAILY;
     Dates: start: 20150315
  13. PLATOSIN [Suspect]
     Active Substance: CISPLATIN
     Indication: LUNG NEOPLASM MALIGNANT
     Route: 042
     Dates: start: 20150317
  14. CODEINE PHOSPHATE [Concomitant]
     Active Substance: CODEINE PHOSPHATE
     Dates: start: 20150315
  15. WINTERMIN [Concomitant]
     Active Substance: PROMAZINE
     Indication: HICCUPS
     Dates: start: 20150318
  16. PANVITAN [Concomitant]
     Dosage: 1 GRAM DAILY;
     Dates: start: 20150309
  17. NOVAMIN [Concomitant]
     Active Substance: PROCHLORPERAZINE MALEATE
     Dosage: 10 MILLIGRAM DAILY;
     Dates: start: 20150317

REACTIONS (3)
  - Hyponatraemia [Recovered/Resolved]
  - Inappropriate antidiuretic hormone secretion [Recovering/Resolving]
  - Death [Fatal]

NARRATIVE: CASE EVENT DATE: 201503
